FAERS Safety Report 9169351 (Version 1)
Quarter: 2013Q1

REPORT INFORMATION
  Report Type: Spontaneous
  Country: US (occurrence: US)
  Receive Date: 20130318
  Receipt Date: 20130318
  Transmission Date: 20140127
  Serious: No
  Sender: FDA-Public Use
  Company Number: US-BAYER-2013-033178

PATIENT
  Age: 78 Year
  Sex: Female

DRUGS (2)
  1. AVELOX [Suspect]
     Indication: BACTERIAL INFECTION
     Dosage: 400 MG, QD
     Route: 048
     Dates: start: 20130304, end: 20130311
  2. ATENOLOL [Concomitant]

REACTIONS (3)
  - Muscular weakness [Recovering/Resolving]
  - Abdominal distension [Recovering/Resolving]
  - Insomnia [Recovering/Resolving]
